FAERS Safety Report 8099053-1 (Version None)
Quarter: 2012Q1

REPORT INFORMATION
  Report Type: 
  Country: None (occurrence: None)
  Receive Date: 20120129
  Receipt Date: 20111020
  Transmission Date: 20120608
  Serious: No
  Sender: FDA-Public Use
  Company Number: US-ABBOTT-11P-163-0867947-00

PATIENT
  Sex: Female
  Weight: 74.91 kg

DRUGS (18)
  1. HUMIRA [Suspect]
     Dates: start: 20110901, end: 20111001
  2. METHOTREXATE [Concomitant]
     Indication: RHEUMATOID ARTHRITIS
  3. MULTI-VITAMIN [Concomitant]
     Indication: SUPPLEMENTATION THERAPY
  4. DILTIAZEM HCL [Concomitant]
     Indication: HYPERTENSION
  5. HUMIRA [Suspect]
     Indication: RHEUMATOID ARTHRITIS
     Dates: start: 20070101, end: 20080101
  6. OXYCONTIN [Concomitant]
     Indication: PAIN
  7. PREDNISONE TAB [Concomitant]
     Indication: RHEUMATOID ARTHRITIS
  8. HYDROCHLOROTHIAZIDE [Concomitant]
     Indication: FLUID RETENTION
  9. ASPIRIN [Concomitant]
     Indication: CARDIAC DISORDER
  10. LORTAB [Concomitant]
     Indication: PAIN
  11. LOVOXYL [Concomitant]
     Indication: THYROID DISORDER
  12. FLEXERIL [Concomitant]
     Indication: MUSCLE SPASMS
  13. GABAPENTIN [Concomitant]
     Indication: NEURALGIA
  14. CALCIUM WITH VITAMIN D [Concomitant]
     Indication: MINERAL SUPPLEMENTATION
  15. TRAZODONE HCL [Concomitant]
     Indication: SLEEP DISORDER
  16. LOSARTAN POTASSIUM [Concomitant]
     Indication: HYPERTENSION
  17. POTASSIUM SODIUM [Concomitant]
     Indication: BLOOD POTASSIUM
  18. FISH OIL [Concomitant]
     Indication: MEDICAL DIET

REACTIONS (4)
  - INJECTION SITE ERYTHEMA [None]
  - INJECTION SITE MASS [None]
  - INJECTION SITE REACTION [None]
  - INJECTION SITE RASH [None]
